FAERS Safety Report 5901918-0 (Version None)
Quarter: 2008Q3

REPORT INFORMATION
  Report Type: 
  Country: None (occurrence: None)
  Receive Date: 20080929
  Receipt Date: 20071217
  Transmission Date: 20090109
  Serious: No
  Sender: FDA-Public Use
  Company Number: US-BRISTOL-MYERS SQUIBB COMPANY-14017370

PATIENT
  Age: 64 Year
  Sex: Male
  Weight: 88 kg

DRUGS (8)
  1. BUSPAR [Suspect]
     Indication: ANXIETY
     Dosage: BUSPAR STARTED IN LATE 1990S
  2. ALLEGRA [Concomitant]
  3. MICARDIS HCT [Concomitant]
  4. PROZAC [Concomitant]
  5. NIFEDIPINE [Concomitant]
  6. LEVOTHYROXINE SODIUM [Concomitant]
  7. NEXIUM [Concomitant]
  8. ASPIRIN [Concomitant]

REACTIONS (2)
  - DYSARTHRIA [None]
  - TINNITUS [None]
